FAERS Safety Report 15297798 (Version 1)
Quarter: 2018Q3

REPORT INFORMATION
  Report Type: Spontaneous
  Country: None (occurrence: CH)
  Receive Date: 20180820
  Receipt Date: 20180820
  Transmission Date: 20181010
  Serious: Yes (Hospitalization)
  Sender: FDA-Public Use
  Company Number: CH-B. BRAUN MEDICAL INC.-2053957

PATIENT
  Age: 83 Year
  Sex: Female

DRUGS (13)
  1. DIOVAN [Concomitant]
     Active Substance: VALSARTAN
  2. MARCOUMAR [Suspect]
     Active Substance: PHENPROCOUMON
     Route: 048
     Dates: end: 20171129
  3. ATORVASTATIN [Concomitant]
     Active Substance: ATORVASTATIN
  4. PREDNISONE. [Concomitant]
     Active Substance: PREDNISONE
  5. KONAKION [Concomitant]
     Active Substance: PHYTONADIONE
     Dates: start: 20171129
  6. QUETIAPINE. [Concomitant]
     Active Substance: QUETIAPINE
  7. BRILIQUE [Suspect]
     Active Substance: TICAGRELOR
     Route: 048
     Dates: start: 20171130, end: 20171130
  8. HEPARIN SODIUM IN DEXTROSE [Suspect]
     Active Substance: HEPARIN SODIUM
     Route: 041
     Dates: start: 20171201, end: 20171205
  9. PLAVIX [Suspect]
     Active Substance: CLOPIDOGREL BISULFATE
     Route: 048
     Dates: start: 20171201
  10. ASPIRIN CARDIO 100 [Suspect]
     Active Substance: ASPIRIN
     Route: 048
     Dates: start: 20171201
  11. FRAGMIN [Suspect]
     Active Substance: DALTEPARIN SODIUM
     Route: 051
     Dates: start: 20171206, end: 20171206
  12. CORDARONE [Concomitant]
     Active Substance: AMIODARONE HYDROCHLORIDE
     Route: 041
     Dates: start: 20171130, end: 20171130
  13. BELOC ZOK [Concomitant]
     Active Substance: METOPROLOL SUCCINATE

REACTIONS (4)
  - Epistaxis [Recovered/Resolved]
  - Haemorrhagic anaemia [Recovering/Resolving]
  - Drug interaction [Recovering/Resolving]
  - Application site haemorrhage [Recovered/Resolved]

NARRATIVE: CASE EVENT DATE: 20171203
